FAERS Safety Report 9329684 (Version 1)
Quarter: 2013Q2

REPORT INFORMATION
  Report Type: Spontaneous
  Country: US (occurrence: None)
  Receive Date: 20130531
  Receipt Date: 20130531
  Transmission Date: 20140414
  Serious: Yes (Hospitalization)
  Sender: FDA-Public Use
  Company Number: FK201301664

PATIENT
  Age: 80 Year
  Sex: Female

DRUGS (1)
  1. AMIODARONE HCL [Suspect]
     Indication: ATRIAL FIBRILLATION

REACTIONS (5)
  - Electrocardiogram QT prolonged [None]
  - Dizziness [None]
  - Ventricular arrhythmia [None]
  - Hypovolaemia [None]
  - Blood creatinine increased [None]
